FAERS Safety Report 9900367 (Version 1)
Quarter: 2014Q1

REPORT INFORMATION
  Report Type: Spontaneous
  Country: ES (occurrence: ES)
  Receive Date: 20140216
  Receipt Date: 20140216
  Transmission Date: 20141002
  Serious: Yes (Other)
  Sender: FDA-Public Use
  Company Number: ES-PFIZER INC-2014042119

PATIENT
  Age: 83 Year
  Sex: Male

DRUGS (1)
  1. LYRICA [Suspect]
     Indication: SCIATICA
     Dosage: 25 MG, UNK
     Route: 048
     Dates: start: 20131125, end: 20131220

REACTIONS (2)
  - Panic attack [Recovered/Resolved]
  - Panic reaction [Recovered/Resolved]
